FAERS Safety Report 8264887-7 (Version None)
Quarter: 2012Q2

REPORT INFORMATION
  Report Type: 
  Country: None (occurrence: None)
  Receive Date: 20120406
  Receipt Date: 20120327
  Transmission Date: 20120825
  Serious: Yes (Other)
  Sender: FDA-Public Use
  Company Number: US-JNJFOC-20120211053

PATIENT
  Sex: Male
  Weight: 113.4 kg

DRUGS (1)
  1. REMICADE [Suspect]
     Indication: COLITIS ULCERATIVE
     Route: 042
     Dates: start: 20050101

REACTIONS (7)
  - FALL [None]
  - PAIN [None]
  - OEDEMA PERIPHERAL [None]
  - MALAISE [None]
  - FOOT FRACTURE [None]
  - RESPIRATORY TRACT INFECTION [None]
  - LIMB INJURY [None]
